FAERS Safety Report 25886785 (Version 1)
Quarter: 2025Q4

REPORT INFORMATION
  Report Type: Spontaneous
  Country: US (occurrence: None)
  Receive Date: 20251006
  Receipt Date: 20251006
  Transmission Date: 20260118
  Serious: Yes (Hospitalization)
  Sender: FDA-CTU
  Company Number: None

PATIENT
  Age: 65 Year
  Sex: Female
  Weight: 97.2 kg

DRUGS (11)
  1. ARCALYST [Suspect]
     Active Substance: RILONACEPT
     Indication: Pericarditis
     Dosage: OTHER QUANTITY : 2 INJECTION(S);?OTHER FREQUENCY : WEEKLY;?
     Route: 058
     Dates: start: 20250925, end: 20250925
  2. AMLODIPINE [Concomitant]
     Active Substance: AMLODIPINE BESYLATE
  3. LISINOPRIL [Concomitant]
     Active Substance: LISINOPRIL
  4. LEVOTHYROXINE [Concomitant]
     Active Substance: LEVOTHYROXINE
  5. ASPIRIN [Concomitant]
     Active Substance: ASPIRIN
  6. CARVEDILOL [Concomitant]
     Active Substance: CARVEDILOL
  7. COLCHICINE [Concomitant]
     Active Substance: COLCHICINE
  8. INDOMETHACIN [Concomitant]
     Active Substance: INDOMETHACIN
  9. PEPCID [Concomitant]
     Active Substance: FAMOTIDINE
  10. FIOROCET [Concomitant]
  11. TYLENOL [Concomitant]
     Active Substance: ACETAMINOPHEN

REACTIONS (2)
  - Urticaria [None]
  - Anaphylactic reaction [None]

NARRATIVE: CASE EVENT DATE: 20250925
